FAERS Safety Report 19275064 (Version 3)
Quarter: 2021Q3

REPORT INFORMATION
  Report Type: Report from Study
  Country: CA (occurrence: CA)
  Receive Date: 20210519
  Receipt Date: 20210714
  Transmission Date: 20211014
  Serious: Yes (Other)
  Sender: FDA-Public Use
  Company Number: CA-JNJFOC-20210523391

PATIENT
  Age: 43 Year
  Sex: Female
  Weight: 81 kg

DRUGS (2)
  1. REMICADE [Suspect]
     Active Substance: INFLIXIMAB
     Dosage: ON 07?JUL?2021, THE PATIENT HAD RECEIVED 4TH INFLIXIMAB INFUSION AT DOSE OF 383MG
     Route: 042
     Dates: start: 2021
  2. REMICADE [Suspect]
     Active Substance: INFLIXIMAB
     Indication: CROHN^S DISEASE
     Dosage: EXPIRY: 01?NOV?2023
     Route: 042
     Dates: start: 20210331

REACTIONS (13)
  - Infusion related reaction [Recovered/Resolved]
  - Diarrhoea [Not Recovered/Not Resolved]
  - Headache [Unknown]
  - Off label use [Unknown]
  - Arthralgia [Unknown]
  - Dizziness [Unknown]
  - Pain [Unknown]
  - Dry mouth [Recovered/Resolved]
  - Therapeutic product effect decreased [Unknown]
  - Nausea [Not Recovered/Not Resolved]
  - Restlessness [Recovered/Resolved]
  - Crohn^s disease [Unknown]
  - Product use issue [Unknown]

NARRATIVE: CASE EVENT DATE: 2021
